FAERS Safety Report 9175201 (Version 1)
Quarter: 2013Q1

REPORT INFORMATION
  Report Type: Spontaneous
  Country: KR (occurrence: KR)
  Receive Date: 20130320
  Receipt Date: 20130320
  Transmission Date: 20140127
  Serious: Yes (Hospitalization, Other)
  Sender: FDA-Public Use
  Company Number: KR-ELI_LILLY_AND_COMPANY-KR201301002801

PATIENT
  Age: 59 Year
  Sex: Female

DRUGS (8)
  1. ALIMTA [Suspect]
     Indication: METASTASES TO LUNG
     Dosage: 765 MG, UNK
     Route: 042
     Dates: start: 20121129
  2. ALIMTA [Suspect]
     Dosage: REDUCED TO 80%
     Route: 042
  3. CISPLATIN [Concomitant]
     Dosage: 92 MG, UNK
     Dates: start: 20121129
  4. FOLIC ACID [Concomitant]
     Dosage: UNK
     Dates: start: 20121127
  5. CYANOCOBALAMINE [Concomitant]
     Dosage: 1 MG, UNK
     Route: 030
     Dates: start: 20121129
  6. IBUPROFEN [Concomitant]
  7. CODEIN [Concomitant]
  8. THEOBROMINE [Concomitant]

REACTIONS (4)
  - Pancreatitis [Recovered/Resolved]
  - Aspartate aminotransferase abnormal [Unknown]
  - Alanine aminotransferase abnormal [Unknown]
  - Blood alkaline phosphatase abnormal [Unknown]
